FAERS Safety Report 4585283-X (Version None)
Quarter: 2005Q1

REPORT INFORMATION
  Report Type: 
  Country: None (occurrence: None)
  Receive Date: 20050214
  Receipt Date: 20050131
  Transmission Date: 20050727
  Serious: Yes (Hospitalization)
  Sender: FDA-Public Use
  Company Number: 2005BI002302

PATIENT
  Age: 59 Year
  Sex: Female
  Weight: 56.6996 kg

DRUGS (1)
  1. AVONEX [Suspect]
     Indication: MULTIPLE SCLEROSIS
     Dosage: 30 UG;; QW; IM
     Route: 030
     Dates: start: 19970101, end: 20031001

REACTIONS (4)
  - COUGH [None]
  - DEHYDRATION [None]
  - DYSSTASIA [None]
  - ERYTHEMA [None]
